FAERS Safety Report 22001919 (Version 1)
Quarter: 2023Q1

REPORT INFORMATION
  Report Type: Report from Study
  Country: BR (occurrence: BR)
  Receive Date: 20230216
  Receipt Date: 20230216
  Transmission Date: 20230418
  Serious: Yes (Hospitalization, Other)
  Sender: FDA-Public Use
  Company Number: BR-JNJFOC-20230224637

PATIENT
  Age: 40 Year
  Sex: Female
  Weight: 52 kg

DRUGS (2)
  1. SIMPONI [Suspect]
     Active Substance: GOLIMUMAB
     Indication: Product used for unknown indication
     Route: 058
     Dates: end: 202208
  2. SIMPONI [Suspect]
     Active Substance: GOLIMUMAB

REACTIONS (4)
  - Urinary tract infection [Unknown]
  - Kidney infection [Unknown]
  - Hepatitis [Unknown]
  - Exposure during pregnancy [Recovered/Resolved]
